FAERS Safety Report 25780115 (Version 5)
Quarter: 2025Q4

REPORT INFORMATION
  Report Type: Spontaneous
  Country: US (occurrence: US)
  Receive Date: 20250909
  Receipt Date: 20251023
  Transmission Date: 20260117
  Serious: No
  Sender: PFIZER
  Company Number: US-PFIZER INC-PV202400120145

PATIENT
  Age: 14 Year
  Sex: Male
  Weight: 41.814 kg

DRUGS (2)
  1. GENOTROPIN [Suspect]
     Active Substance: SOMATROPIN
     Indication: Hypopituitarism
     Dosage: 1.5 MG, DAILY 7 DAYS/WEEK ( 1.4 MG W/ 1.6 MG EVERY OTHER DAY)
     Route: 058
     Dates: start: 202410
  2. GENOTROPIN [Suspect]
     Active Substance: SOMATROPIN
     Indication: Growth hormone deficiency

REACTIONS (10)
  - Product prescribing error [Unknown]
  - Injection site pain [Recovered/Resolved]
  - Injection site bruising [Recovered/Resolved]
  - Injection site discolouration [Recovered/Resolved]
  - Injection site extravasation [Recovered/Resolved]
  - Poor quality device used [Recovered/Resolved]
  - Device use error [Recovered/Resolved]
  - Device leakage [Unknown]
  - Accidental exposure to product [Recovered/Resolved]
  - Exposure via skin contact [Recovered/Resolved]

NARRATIVE: CASE EVENT DATE: 20250901
